FAERS Safety Report 23057668 (Version 3)
Quarter: 2024Q1

REPORT INFORMATION
  Report Type: Spontaneous
  Country: US (occurrence: US)
  Receive Date: 20231012
  Receipt Date: 20240205
  Transmission Date: 20240410
  Serious: Yes (Other)
  Sender: FDA-Public Use
  Company Number: US-BRISTOL-MYERS SQUIBB COMPANY-2023-144993

PATIENT
  Age: 81 Year
  Sex: Female
  Weight: 99.7 kg

DRUGS (1)
  1. LENALIDOMIDE [Suspect]
     Active Substance: LENALIDOMIDE
     Indication: Plasma cell myeloma
     Dosage: TAKE 1 CAPSULE BY MOUTH EVERY DAY FOR 21 DAYS THEN REST 1 WEEK AND REPEAT
     Route: 048
     Dates: start: 20221110

REACTIONS (3)
  - Urinary tract infection [Recovered/Resolved]
  - Thrombosis [Recovering/Resolving]
  - Dementia [Recovering/Resolving]

NARRATIVE: CASE EVENT DATE: 20231001
